FAERS Safety Report 8741671 (Version 3)
Quarter: 2013Q1

REPORT INFORMATION
  Report Type: Report from Study
  Country: JP (occurrence: JP)
  Receive Date: 20120824
  Receipt Date: 20130305
  Transmission Date: 20140127
  Serious: Yes (Other)
  Sender: FDA-Public Use
  Company Number: JP-MERCK-1208JPN004785

PATIENT
  Age: 46 Year
  Sex: Male
  Weight: 69 kg

DRUGS (6)
  1. PEGINTRON [Suspect]
     Indication: CHRONIC HEPATITIS C
     Dosage: 1.5 MICROGRAM PER KILOGRAM, QW
     Route: 058
     Dates: start: 20120611, end: 20120706
  2. REBETOL [Suspect]
     Indication: CHRONIC HEPATITIS C
     Dosage: 800 MG, QD
     Route: 048
     Dates: start: 20120611, end: 20120712
  3. TELAVIC [Suspect]
     Indication: CHRONIC HEPATITIS C
     Dosage: 2250 MG, QD
     Route: 048
     Dates: start: 20120611, end: 20120712
  4. URSO [Concomitant]
     Indication: CHRONIC HEPATITIS C
     Dosage: 600 MG, QD FORMULATION: POR
     Route: 048
     Dates: start: 20120507, end: 20120625
  5. ACINON [Concomitant]
     Indication: PROPHYLAXIS
     Dosage: 150 MG PER DAY , PRN. FORMULATION: POR
     Route: 048
     Dates: start: 20120614, end: 20120626
  6. MUCOSTA [Concomitant]
     Indication: PROPHYLAXIS
     Dosage: 100 MG PER DAY, PRN
     Route: 048
     Dates: start: 20120627, end: 20120701

REACTIONS (1)
  - Depressive symptom [Recovering/Resolving]
